FAERS Safety Report 11571049 (Version 2)
Quarter: 2015Q4

REPORT INFORMATION
  Report Type: Spontaneous
  Country: US (occurrence: US)
  Receive Date: 20150916
  Receipt Date: 20151027
  Transmission Date: 20160304
  Serious: No
  Sender: FDA-Public Use
  Company Number: US-ELI_LILLY_AND_COMPANY-US200909003782

PATIENT
  Age: 91 Year
  Sex: Female

DRUGS (1)
  1. FORTEO [Suspect]
     Active Substance: TERIPARATIDE

REACTIONS (6)
  - Pruritus [Unknown]
  - Arthralgia [Unknown]
  - Muscle spasms [Unknown]
  - Contusion [Unknown]
  - Haemorrhage [Unknown]
  - Needle track marks [Unknown]
